FAERS Safety Report 18986392 (Version 2)
Quarter: 2022Q1

REPORT INFORMATION
  Report Type: Report from Study
  Country: US (occurrence: US)
  Receive Date: 20210309
  Receipt Date: 20220301
  Transmission Date: 20220423
  Serious: No
  Sender: FDA-Public Use
  Company Number: US-TAKEDA-2021TUS013712

PATIENT
  Sex: Female
  Weight: 97 kg

DRUGS (8)
  1. HUMAN IMMUNOGLOBULIN G [Suspect]
     Active Substance: HUMAN IMMUNOGLOBULIN G
     Indication: Immunodeficiency common variable
     Dosage: 15 MILLIGRAM, 1/WEEK
     Route: 058
     Dates: start: 20200118
  2. ACETAMINOPHEN [Concomitant]
     Active Substance: ACETAMINOPHEN
  3. DIPHENHYDRAMINE [Concomitant]
     Active Substance: DIPHENHYDRAMINE
  4. EPINEPHRINE [Concomitant]
     Active Substance: EPINEPHRINE
  5. LIDOCAINE [Concomitant]
     Active Substance: LIDOCAINE
  6. PRISTIQ EXTENDED-RELEASE [Concomitant]
     Active Substance: DESVENLAFAXINE SUCCINATE
  7. LEVOTHYROXINE [Concomitant]
     Active Substance: LEVOTHYROXINE
  8. ALLEGRA-D [FEXOFENADINE;PSEUDOEPHEDRINE HYDROCHLORIDE] [Concomitant]

REACTIONS (4)
  - Seasonal allergy [Unknown]
  - Sinusitis [Unknown]
  - COVID-19 [Unknown]
  - Product dose omission issue [Unknown]
